FAERS Safety Report 6036879-X (Version None)
Quarter: 2009Q1

REPORT INFORMATION
  Report Type: 
  Country: None (occurrence: None)
  Receive Date: 20090114
  Receipt Date: 20090105
  Transmission Date: 20090719
  Serious: Yes (Other)
  Sender: FDA-Public Use
  Company Number: US-WYE-H07550309

PATIENT
  Age: 78 Year
  Sex: Female
  Weight: 68.1 kg

DRUGS (11)
  1. FIBERCON [Suspect]
     Indication: DRUG USE FOR UNKNOWN INDICATION
     Dosage: UNKNOWN
     Route: 048
  2. OMEPRAZOLE [Concomitant]
     Indication: GASTRIC DISORDER
     Dosage: UNKNOWN
     Route: 048
  3. PROMETHAZINE [Concomitant]
     Indication: GASTRIC DISORDER
     Dosage: UNKNOWN
     Route: 048
  4. SYNTHROID [Concomitant]
     Indication: THYROID DISORDER
     Dosage: UNKNOWN
     Route: 048
  5. BETACAROTENE [Concomitant]
     Indication: NUTRITIONAL SUPPORT
     Dosage: UNKNOWN
     Route: 048
  6. ALLEGRA D 24 HOUR [Concomitant]
     Dosage: UNKNOWN
     Route: 048
  7. ASCORBIC ACID [Concomitant]
     Indication: NUTRITIONAL SUPPORT
     Dosage: UNKNOWN
     Route: 048
  8. OSCAL [Concomitant]
     Indication: NUTRITIONAL SUPPORT
     Dosage: UNKNOWN
     Route: 048
  9. LUTEIN [Concomitant]
     Indication: NUTRITIONAL SUPPORT
     Dosage: UNKNOWN
     Route: 048
  10. CENTRUM SILVER [Suspect]
     Indication: NUTRITIONAL SUPPORT
     Route: 048
  11. LEXAPRO [Concomitant]
     Dosage: UNKNOWN
     Route: 048

REACTIONS (2)
  - MYELODYSPLASTIC SYNDROME [None]
  - ROSACEA [None]
